FAERS Safety Report 5116950-7 (Version None)
Quarter: 2006Q3

REPORT INFORMATION
  Report Type: 
  Country: None (occurrence: None)
  Receive Date: 20060925
  Receipt Date: 20060906
  Transmission Date: 20061208
  Serious: Yes (Hospitalization)
  Sender: FDA-Public Use
  Company Number: S06-FRA-03794-01

PATIENT
  Age: 93 Year
  Sex: Male
  Weight: 73 kg

DRUGS (10)
  1. SEROPLEX (ESCITALOPRAM) [Suspect]
     Dates: start: 20060711, end: 20060717
  2. SOTALOL HCL [Suspect]
     Indication: ESSENTIAL HYPERTENSION
     Dates: end: 20060722
  3. HEPARIN SODIUM [Suspect]
     Indication: EMBOLISM
     Dosage: 1 BID SC
     Route: 058
     Dates: start: 20060703, end: 20060717
  4. HEPARIN SODIUM [Suspect]
     Indication: THROMBOSIS
     Dosage: 1 BID SC
     Route: 058
     Dates: start: 20060703, end: 20060717
  5. ATARAX [Concomitant]
  6. PANTOPRAZOLE SODIUM [Concomitant]
  7. INEXIUM (ESOMEPRAZOLE) [Concomitant]
  8. CLINOMEL [Concomitant]
  9. SUCRALFATE [Concomitant]
  10. STABLON (TIANEPTINE) [Concomitant]

REACTIONS (1)
  - PURPURA [None]
